FAERS Safety Report 12108362 (Version 4)
Quarter: 2016Q1

REPORT INFORMATION
  Report Type: Spontaneous
  Country: JP (occurrence: JP)
  Receive Date: 20160224
  Receipt Date: 20160329
  Transmission Date: 20160526
  Serious: Yes (Death, Life-Threatening, Hospitalization)
  Sender: FDA-Public Use
  Company Number: JP-ROCHE-1715888

PATIENT
  Age: 69 Year
  Sex: Male
  Weight: 49 kg

DRUGS (9)
  1. REBAMIPIDE [Concomitant]
     Active Substance: REBAMIPIDE
     Route: 048
  2. BROTIZOLAM [Concomitant]
     Active Substance: BROTIZOLAM
     Route: 048
  3. DEXALTIN [Concomitant]
     Active Substance: DEXAMETHASONE
     Route: 065
  4. DAIKENCHUTO [Concomitant]
     Active Substance: HERBALS
     Route: 048
  5. METHYCOBAL [Concomitant]
     Active Substance: METHYLCOBALAMIN
     Route: 048
  6. LOXOPROFEN [Concomitant]
     Active Substance: LOXOPROFEN
     Route: 048
  7. BROTIZOLAM [Concomitant]
     Active Substance: BROTIZOLAM
     Route: 048
  8. YOKUKANSAN [Concomitant]
     Active Substance: HERBALS
     Route: 048
  9. XELODA [Suspect]
     Active Substance: CAPECITABINE
     Indication: RECTAL CANCER
     Route: 048
     Dates: start: 20160119, end: 20160202

REACTIONS (9)
  - Mucous membrane disorder [Unknown]
  - Febrile neutropenia [Not Recovered/Not Resolved]
  - Melaena [Unknown]
  - Multiple organ dysfunction syndrome [Fatal]
  - Bone marrow failure [Recovered/Resolved]
  - Diarrhoea [Unknown]
  - Septic shock [Unknown]
  - Disseminated intravascular coagulation [Not Recovered/Not Resolved]
  - Off label use [Unknown]

NARRATIVE: CASE EVENT DATE: 20160204
